FAERS Safety Report 7554914-4 (Version None)
Quarter: 2011Q2

REPORT INFORMATION
  Report Type: 
  Country: None (occurrence: None)
  Receive Date: 20110617
  Receipt Date: 20110607
  Transmission Date: 20111010
  Serious: Yes (Hospitalization)
  Sender: FDA-Public Use
  Company Number: FR-ELI_LILLY_AND_COMPANY-FR201106001718

PATIENT
  Sex: Male

DRUGS (18)
  1. PERINDOPRIL ERBUMINE [Concomitant]
     Dosage: UNK
  2. LEVEMIR [Concomitant]
     Dosage: 100 IU, EACH MORNING
  3. VASTAREL [Concomitant]
     Dosage: UNK
  4. ATARAX [Concomitant]
     Dosage: UNK
  5. CRESTOR [Concomitant]
     Dosage: UNK
  6. NOVORAPID [Concomitant]
     Dosage: 10 IU, TID
  7. PLAVIX [Concomitant]
     Dosage: UNK
  8. LERCANIDIPINE [Concomitant]
     Dosage: UNK
  9. OMACOR [Concomitant]
     Dosage: UNK
  10. NEXIUM [Concomitant]
     Dosage: UNK
  11. SODIUM CHLORIDE [Concomitant]
  12. UMULINE REGULAR [Suspect]
     Indication: HYPERGLYCAEMIA
     Dosage: UNK
     Route: 058
     Dates: start: 20110330
  13. BISOPROLOL FUMARATE [Concomitant]
     Dosage: UNK
  14. LASIX [Concomitant]
     Dosage: UNK
  15. FERROUS SULFATE TAB [Concomitant]
     Dosage: UNK
  16. AMIODARONE HCL [Concomitant]
     Dosage: UNK
  17. KARDEGIC [Concomitant]
     Dosage: UNK
  18. IKOREL [Concomitant]
     Dosage: UNK

REACTIONS (1)
  - ANGIOEDEMA [None]
